FAERS Safety Report 20701276 (Version 1)
Quarter: 2022Q2

REPORT INFORMATION
  Report Type: Report from Study
  Country: AT (occurrence: AT)
  Receive Date: 20220412
  Receipt Date: 20220412
  Transmission Date: 20220721
  Serious: Yes (Other)
  Sender: FDA-Public Use
  Company Number: AT-PFM-2022-03125

PATIENT
  Age: 57 Year
  Sex: Female
  Weight: 54 kg

DRUGS (8)
  1. BRAFTOVI [Suspect]
     Active Substance: ENCORAFENIB
     Indication: Colorectal cancer
     Dosage: 300 MG, UNK
     Route: 048
     Dates: start: 20220310
  2. CETUXIMAB [Suspect]
     Active Substance: CETUXIMAB
     Indication: Colorectal cancer
     Dosage: 400 MG/M2, UNK
     Route: 042
     Dates: start: 20220310
  3. HYDROMORPHONE HYDROCHLORIDE [Concomitant]
     Active Substance: HYDROMORPHONE HYDROCHLORIDE
     Indication: Pain
     Dosage: 6 MG, BID (2/DAY)
     Route: 048
     Dates: start: 20220308, end: 20220316
  4. MINOSTAD [Concomitant]
     Indication: Prophylaxis
     Dosage: 50 MG, BID (2/DAY)
     Route: 048
     Dates: start: 20220310
  5. METAMIZOL [METAMIZOLE SODIUM] [Concomitant]
     Indication: Pain
     Dosage: 500 MG, TID (3/DAY)
     Route: 048
     Dates: start: 20220314
  6. AMITRIPTYLINE [Concomitant]
     Active Substance: AMITRIPTYLINE
     Indication: Pain
     Dosage: 25 MG, DAILY
     Route: 048
     Dates: start: 20220315
  7. BUPRENORPHINE [Concomitant]
     Active Substance: BUPRENORPHINE
     Indication: Pain
     Dosage: 35 ?G, DAILY
     Route: 062
     Dates: start: 20220316
  8. PANTOPRAZOLE SODIUM [Concomitant]
     Active Substance: PANTOPRAZOLE SODIUM
     Indication: Prophylaxis
     Dosage: 40 MG, DAILY
     Route: 048
     Dates: start: 20220317

REACTIONS (2)
  - Hypothyroidism [Not Recovered/Not Resolved]
  - Brain oedema [Not Recovered/Not Resolved]

NARRATIVE: CASE EVENT DATE: 20220311
